FAERS Safety Report 7568390-9 (Version None)
Quarter: 2011Q2

REPORT INFORMATION
  Report Type: 
  Country: None (occurrence: None)
  Receive Date: 20110623
  Receipt Date: 20110613
  Transmission Date: 20111010
  Serious: Yes (Other)
  Sender: FDA-Public Use
  Company Number: B0727124A

PATIENT
  Age: 51 Year
  Sex: Male

DRUGS (2)
  1. ANTI INFLAMMATORY [Concomitant]
  2. ACITRETIN [Suspect]
     Route: 048
     Dates: start: 20060101, end: 20110605

REACTIONS (2)
  - DRUG INEFFECTIVE [None]
  - PSORIATIC ARTHROPATHY [None]
